FAERS Safety Report 6985158-2 (Version None)
Quarter: 2010Q3

REPORT INFORMATION
  Report Type: 
  Country: None (occurrence: None)
  Receive Date: 20100915
  Receipt Date: 20100903
  Transmission Date: 20110219
  Serious: Yes (Hospitalization)
  Sender: FDA-Public Use
  Company Number: DE-ROCHE-721889

PATIENT
  Sex: Male
  Weight: 91.2 kg

DRUGS (5)
  1. BEVACIZUMAB [Suspect]
     Dosage: CYCLES 1-4
     Route: 042
     Dates: start: 20100101
  2. BEVACIZUMAB [Suspect]
     Dosage: CYCLE 5
     Route: 042
     Dates: start: 20100315, end: 20100315
  3. FOLFIRI REGIMEN [Concomitant]
     Dates: start: 20100101, end: 20100301
  4. TORASEMID [Concomitant]
  5. METOPROLOL TARTRATE [Concomitant]

REACTIONS (2)
  - DEEP VEIN THROMBOSIS [None]
  - PNEUMONIA [None]
